FAERS Safety Report 10944099 (Version 2)
Quarter: 2015Q2

REPORT INFORMATION
  Report Type: Report from Study
  Country: CA (occurrence: CA)
  Receive Date: 20150323
  Receipt Date: 20150604
  Transmission Date: 20150821
  Serious: Yes (Other)
  Sender: FDA-Public Use
  Company Number: CA-ROCHE-1554105

PATIENT
  Sex: Female

DRUGS (16)
  1. LORAZEPAM. [Concomitant]
     Active Substance: LORAZEPAM
  2. VOLTAREN [Concomitant]
     Active Substance: DICLOFENAC SODIUM
  3. NASONEX [Concomitant]
     Active Substance: MOMETASONE FUROATE
  4. HYDROMORPHONE [Concomitant]
     Active Substance: HYDROMORPHONE
  5. RITUXAN [Suspect]
     Active Substance: RITUXIMAB
     Indication: RHEUMATOID ARTHRITIS
     Dosage: FREQUENCY: DAY 1, DAY 15
     Route: 042
     Dates: start: 20100111
  6. LOMOTIL (ATROPINE SULFATE/DIPHENOXYLATE HYDROCHLORIDE) [Concomitant]
  7. PLAQUENIL [Concomitant]
     Active Substance: HYDROXYCHLOROQUINE SULFATE
  8. DIPHENHYDRAMINE HCL [Concomitant]
     Active Substance: DIPHENHYDRAMINE HYDROCHLORIDE
     Indication: PREMEDICATION
     Route: 048
     Dates: start: 20100111
  9. REMERON [Concomitant]
     Active Substance: MIRTAZAPINE
  10. PARIET [Concomitant]
     Active Substance: RABEPRAZOLE SODIUM
  11. ZOPICLONE [Concomitant]
     Active Substance: ZOPICLONE
  12. LEVOTHYROXINE [Concomitant]
     Active Substance: LEVOTHYROXINE
  13. METHYLPREDNISOLONE. [Concomitant]
     Active Substance: METHYLPREDNISOLONE
     Indication: PREMEDICATION
     Route: 042
     Dates: start: 20100111
  14. IMURAN [Concomitant]
     Active Substance: AZATHIOPRINE
  15. PREDNISONE. [Concomitant]
     Active Substance: PREDNISONE
  16. DOMPERIDONE [Concomitant]
     Active Substance: DOMPERIDONE

REACTIONS (11)
  - Dysphagia [Unknown]
  - Blood creatine phosphokinase increased [Unknown]
  - Memory impairment [Unknown]
  - Malaise [Unknown]
  - Depression [Unknown]
  - Cognitive disorder [Unknown]
  - Muscular weakness [Unknown]
  - Fall [Unknown]
  - Dysphonia [Unknown]
  - Generalised tonic-clonic seizure [Unknown]
  - Intervertebral disc degeneration [Unknown]

NARRATIVE: CASE EVENT DATE: 2011
